FAERS Safety Report 23840849 (Version 1)
Quarter: 2024Q2

REPORT INFORMATION
  Report Type: Report from Study
  Country: US (occurrence: US)
  Receive Date: 20240510
  Receipt Date: 20240510
  Transmission Date: 20240716
  Serious: Yes (Other)
  Sender: FDA-Public Use
  Company Number: US-GILEAD-2024-0672073

PATIENT
  Sex: Male

DRUGS (1)
  1. AZTREONAM LYSINE [Suspect]
     Active Substance: AZTREONAM LYSINE
     Indication: Product used for unknown indication
     Dosage: 75 MG, TID VIA NEBULIZER 28 DAYS ON, 28 DAYS OFF TO CYCLE THROUGH ENTIRE YEAR
     Route: 055

REACTIONS (2)
  - Pseudomonas infection [Unknown]
  - Aspergillus infection [Unknown]
